FAERS Safety Report 14666186 (Version 1)
Quarter: 2018Q1

REPORT INFORMATION
  Report Type: Spontaneous
  Country: US (occurrence: US)
  Receive Date: 20180321
  Receipt Date: 20180321
  Transmission Date: 20180509
  Serious: No
  Sender: FDA-Public Use
  Company Number: US-009507513-1803USA007085

PATIENT
  Age: 49 Year
  Sex: Female

DRUGS (1)
  1. BELSOMRA [Suspect]
     Active Substance: SUVOREXANT
     Indication: INSOMNIA
     Dosage: 10 MG PER TABLET
     Route: 048
     Dates: start: 20180312, end: 20180313

REACTIONS (5)
  - Drug ineffective [Unknown]
  - Insomnia [Unknown]
  - Head discomfort [Unknown]
  - Restlessness [Unknown]
  - Fatigue [Unknown]

NARRATIVE: CASE EVENT DATE: 201803
